FAERS Safety Report 8591150-7 (Version None)
Quarter: 2012Q3

REPORT INFORMATION
  Report Type: 
  Country: None (occurrence: None)
  Receive Date: 20120813
  Receipt Date: 20120809
  Transmission Date: 20120928
  Serious: Yes (Hospitalization)
  Sender: FDA-Public Use
  Company Number: BR-ROCHE-1100206

PATIENT
  Sex: Female
  Weight: 86 kg

DRUGS (11)
  1. MABTHERA [Suspect]
     Indication: RHEUMATOID ARTHRITIS
     Route: 042
     Dates: start: 20110812
  2. ASPIRIN [Concomitant]
  3. PREDNISONE TAB [Concomitant]
  4. ACETAMINOPHEN [Concomitant]
  5. ROSUVASTATIN [Concomitant]
  6. ATENOLOL [Concomitant]
  7. AMLODIPINE [Concomitant]
  8. LOSARTAN POTASSIUM [Concomitant]
  9. GABAPENTIN [Concomitant]
  10. CLOPIDOGREL [Concomitant]
  11. HYDROCHLOROTHIAZIDE [Concomitant]

REACTIONS (2)
  - CARDIAC DISORDER [None]
  - INFLUENZA [None]
